FAERS Safety Report 7249389-9 (Version None)
Quarter: 2011Q1

REPORT INFORMATION
  Report Type: 
  Country: None (occurrence: None)
  Receive Date: 20110128
  Receipt Date: 20101216
  Transmission Date: 20110831
  Serious: Yes (Other)
  Sender: FDA-Public Use
  Company Number: US-BAYER-200938606NA

PATIENT
  Sex: Female
  Weight: 66 kg

DRUGS (8)
  1. ACICLOVIR [Concomitant]
     Indication: PRODUCT USED FOR UNKNOWN INDICATION
     Route: 048
  2. YAZ [Suspect]
     Indication: ORAL CONTRACEPTION
     Route: 048
     Dates: start: 20070323, end: 20071231
  3. PRENATAL VITAMINS [Concomitant]
  4. YASMIN [Suspect]
     Indication: ORAL CONTRACEPTION
  5. BETA-VAL [Concomitant]
     Indication: PSORIASIS
     Dosage: 0.1%
  6. PRILOSEC [Concomitant]
     Indication: PRODUCT USED FOR UNKNOWN INDICATION
  7. VALTREX [Concomitant]
     Indication: PRODUCT USED FOR UNKNOWN INDICATION
  8. LOW-OGESTREL [Concomitant]
     Indication: PRODUCT USED FOR UNKNOWN INDICATION
     Route: 048

REACTIONS (6)
  - SYNCOPE [None]
  - PALPITATIONS [None]
  - ARRHYTHMIA [None]
  - SINUS TACHYCARDIA [None]
  - DYSPNOEA EXERTIONAL [None]
  - CHEST DISCOMFORT [None]
